FAERS Safety Report 9452437 (Version 1)
Quarter: 2013Q3

REPORT INFORMATION
  Report Type: Spontaneous
  Country: US (occurrence: None)
  Receive Date: 20130808
  Receipt Date: 20130808
  Transmission Date: 20140515
  Serious: Yes (Other)
  Sender: FDA-Public Use
  Company Number: None

PATIENT
  Age: 16 Year
  Sex: Female
  Weight: 48.99 kg

DRUGS (3)
  1. AMOXICILLIN [Suspect]
     Indication: ACUTE SINUSITIS
     Route: 048
     Dates: start: 20130806, end: 20130807
  2. AMOXICILLIN [Suspect]
     Indication: OTITIS MEDIA
     Route: 048
     Dates: start: 20130806, end: 20130807
  3. AMOXICILLIN [Suspect]
     Indication: PHARYNGITIS
     Route: 048
     Dates: start: 20130806, end: 20130807

REACTIONS (2)
  - Local swelling [None]
  - Hyperhidrosis [None]
